FAERS Safety Report 18519620 (Version 2)
Quarter: 2020Q4

REPORT INFORMATION
  Report Type: Report from Study
  Country: US (occurrence: US)
  Receive Date: 20201119
  Receipt Date: 20201228
  Transmission Date: 20210114
  Serious: Yes (Hospitalization)
  Sender: FDA-Public Use
  Company Number: US-JNJFOC-20200925985

PATIENT
  Age: 71 Year
  Sex: Male
  Weight: 107.6 kg

DRUGS (30)
  1. APALUTAMIDE [Suspect]
     Active Substance: APALUTAMIDE
     Indication: PROSTATE CANCER METASTATIC
     Dosage: MED KIT 4378368; MOST RECENT DOSE 18/AUG/2020
     Route: 048
     Dates: start: 20160623
  2. FENOFIBRATE. [Concomitant]
     Active Substance: FENOFIBRATE
     Indication: HYPERCHOLESTEROLAEMIA
     Route: 048
     Dates: start: 2001
  3. TAMOXIFEN [Concomitant]
     Active Substance: TAMOXIFEN
     Indication: HOT FLUSH
     Route: 048
     Dates: start: 20160914
  4. CEFUROXIME. [Concomitant]
     Active Substance: CEFUROXIME
     Indication: SINUSITIS
     Route: 048
     Dates: start: 20180126
  5. PREDNSIONE [Suspect]
     Active Substance: PREDNISONE
     Indication: PROSTATE CANCER METASTATIC
     Dosage: MED IT 4379654; MOST RECENT DOSE 18/AUG/2020
     Route: 048
     Dates: start: 20200623
  6. MEGESTROL [Concomitant]
     Active Substance: MEGESTROL
     Indication: HOT FLUSH
     Route: 048
     Dates: start: 20170524
  7. FEXOFENADINE [Concomitant]
     Active Substance: FEXOFENADINE HYDROCHLORIDE
     Indication: UPPER-AIRWAY COUGH SYNDROME
     Route: 048
     Dates: start: 20180518
  8. ALLEGRA ALLERGY [Concomitant]
     Active Substance: FEXOFENADINE HYDROCHLORIDE
     Indication: UPPER-AIRWAY COUGH SYNDROME
     Route: 048
     Dates: start: 20180518
  9. ZOLPIDEM [Concomitant]
     Active Substance: ZOLPIDEM TARTRATE
     Indication: INSOMNIA
     Route: 048
     Dates: start: 20110520
  10. JARDIANCE [Concomitant]
     Active Substance: EMPAGLIFLOZIN
     Indication: DIABETES MELLITUS
     Route: 048
     Dates: start: 20180701
  11. PRASUGREL HYDROCHLORIDE [Concomitant]
     Active Substance: PRASUGREL HYDROCHLORIDE
     Indication: ANGINA PECTORIS
     Route: 048
     Dates: start: 20171003
  12. NITROGLYCERIN. [Concomitant]
     Active Substance: NITROGLYCERIN
     Indication: ANGINA PECTORIS
     Dosage: AS NECESSARY
     Route: 060
     Dates: start: 20171017
  13. RANEXA [Concomitant]
     Active Substance: RANOLAZINE
     Indication: CORONARY ARTERY DISEASE
     Route: 048
     Dates: start: 2016
  14. TAMSULOSIN [Concomitant]
     Active Substance: TAMSULOSIN
     Indication: URINARY HESITATION
     Route: 048
     Dates: start: 20110907
  15. CANDESARTAN CILEXETIL. [Concomitant]
     Active Substance: CANDESARTAN CILEXETIL
     Indication: HYPERTENSION
     Route: 048
     Dates: start: 20170816
  16. NASOCORT [Concomitant]
     Active Substance: BUDESONIDE
     Indication: UPPER-AIRWAY COUGH SYNDROME
     Route: 045
     Dates: start: 20180224
  17. EZETIMIBE. [Concomitant]
     Active Substance: EZETIMIBE
     Indication: HYPERCHOLESTEROLAEMIA
     Route: 048
     Dates: start: 20180701
  18. BYDUREON [Concomitant]
     Active Substance: EXENATIDE
     Indication: CORONARY ARTERY DISEASE
     Route: 058
     Dates: start: 2011
  19. DENOSUMAB [Concomitant]
     Active Substance: DENOSUMAB
     Dosage: TRIAL INDICATION
     Route: 058
     Dates: start: 20110422
  20. ATORVASTATIN [Concomitant]
     Active Substance: ATORVASTATIN
     Indication: HYPERCHOLESTEROLAEMIA
     Route: 048
     Dates: start: 20170912
  21. SYNTHROID [Concomitant]
     Active Substance: LEVOTHYROXINE SODIUM
     Indication: HYPOTHYROIDISM
     Dates: start: 20170524
  22. METOPROLOL. [Concomitant]
     Active Substance: METOPROLOL
     Indication: ANGINA PECTORIS
     Route: 048
     Dates: start: 20171003
  23. IPRATROPIUM [Concomitant]
     Active Substance: IPRATROPIUM
     Indication: UPPER-AIRWAY COUGH SYNDROME
     Dates: start: 20180501
  24. ABIRATERONE ACETATE. [Suspect]
     Active Substance: ABIRATERONE ACETATE
     Indication: PROSTATE CANCER METASTATIC
     Dosage: MED KIT 4379662, MOST RECENT DOSE 23/JUN/2016
     Route: 048
     Dates: start: 20160623
  25. INVOKANA [Concomitant]
     Active Substance: CANAGLIFLOZIN
     Indication: DIABETES MELLITUS
     Route: 048
     Dates: start: 2011
  26. MEDROL [Concomitant]
     Active Substance: METHYLPREDNISOLONE
     Indication: SINUSITIS
     Dosage: OTHER
     Route: 048
     Dates: start: 20180126
  27. FLONASE [Concomitant]
     Active Substance: FLUTICASONE PROPIONATE
     Indication: UPPER-AIRWAY COUGH SYNDROME
     Route: 045
     Dates: start: 20180828
  28. EFFIENT [Concomitant]
     Active Substance: PRASUGREL HYDROCHLORIDE
     Indication: CORONARY ARTERY DISEASE
     Route: 048
     Dates: start: 2001
  29. HUMALOG [Concomitant]
     Active Substance: INSULIN LISPRO
     Indication: DIABETES MELLITUS
     Dosage: 40 OTHER AS NECESSARY
     Route: 058
  30. TOUJEO [Concomitant]
     Active Substance: INSULIN GLARGINE
     Indication: DIABETES MELLITUS
     Dosage: OTHER
     Route: 058
     Dates: start: 20171206

REACTIONS (1)
  - Myocardial infarction [Recovered/Resolved]

NARRATIVE: CASE EVENT DATE: 20200818
